FAERS Safety Report 20125138 (Version 1)
Quarter: 2021Q4

REPORT INFORMATION
  Report Type: Report from Study
  Country: US (occurrence: US)
  Receive Date: 20211129
  Receipt Date: 20211129
  Transmission Date: 20220303
  Serious: Yes (Hospitalization, Other)
  Sender: FDA-Public Use
  Company Number: US-JAZZ-JPI-P-016885

PATIENT
  Sex: Female
  Weight: 59.091 kg

DRUGS (26)
  1. XYREM [Suspect]
     Active Substance: SODIUM OXYBATE
     Indication: Narcolepsy
     Dosage: 3 GRAM, BID
     Route: 048
     Dates: start: 20090219, end: 201201
  2. XYREM [Suspect]
     Active Substance: SODIUM OXYBATE
     Indication: Cataplexy
     Dosage: 3 GRAM, QD
     Route: 048
     Dates: start: 2012
  3. XYREM [Suspect]
     Active Substance: SODIUM OXYBATE
     Dosage: 3 GRAM, BID
     Route: 048
  4. XYREM [Suspect]
     Active Substance: SODIUM OXYBATE
     Dosage: 4 GRAM, BID
     Route: 048
  5. SUMATRIPTAN SUCCINATE [Concomitant]
     Active Substance: SUMATRIPTAN SUCCINATE
  6. AMLODIPINE BESYLATE [Concomitant]
     Active Substance: AMLODIPINE BESYLATE
  7. DICLOFENAC SODIUM [Concomitant]
     Active Substance: DICLOFENAC SODIUM
  8. METOPROLOL SUCCINATE [Concomitant]
     Active Substance: METOPROLOL SUCCINATE
  9. IRBESARTAN [Concomitant]
     Active Substance: IRBESARTAN
  10. VENLAFAXINE HYDROCHLORIDE [Concomitant]
     Active Substance: VENLAFAXINE HYDROCHLORIDE
  11. DILTIAZEM HYDROCHLORIDE [Concomitant]
     Active Substance: DILTIAZEM HYDROCHLORIDE
  12. IMITREX [Concomitant]
     Active Substance: SUMATRIPTAN SUCCINATE
  13. ASPIRIN [Concomitant]
     Active Substance: ASPIRIN
  14. VITAMIN D3 [Concomitant]
     Active Substance: CHOLECALCIFEROL
  15. EFFEXOR [Concomitant]
     Active Substance: VENLAFAXINE HYDROCHLORIDE
  16. TOPROL XL [Concomitant]
     Active Substance: METOPROLOL SUCCINATE
  17. CARDIZEM CD [Concomitant]
     Active Substance: DILTIAZEM HYDROCHLORIDE
  18. ATORVASTATIN [Concomitant]
     Active Substance: ATORVASTATIN
  19. HYDROCHLOROTHIAZIDE [Concomitant]
     Active Substance: HYDROCHLOROTHIAZIDE
  20. CYANOCOBALAMIN [Concomitant]
     Active Substance: CYANOCOBALAMIN
  21. PROLIA [Concomitant]
     Active Substance: DENOSUMAB
  22. COENZYME Q10 [Concomitant]
     Active Substance: DIETARY SUPPLEMENT\UBIDECARENONE
  23. POTASSIUM GLUCONATE [Concomitant]
     Active Substance: POTASSIUM GLUCONATE
  24. MODAFINIL [Concomitant]
     Active Substance: MODAFINIL
  25. GABAPENTIN [Concomitant]
     Active Substance: GABAPENTIN
  26. OXYCODONE AND ACETAMINOPHEN [Concomitant]
     Active Substance: ACETAMINOPHEN\OXYCODONE HYDROCHLORIDE

REACTIONS (14)
  - Neck injury [Recovering/Resolving]
  - Asthenopia [Not Recovered/Not Resolved]
  - Road traffic accident [Recovered/Resolved]
  - Neck pain [Unknown]
  - Condition aggravated [Unknown]
  - Weight increased [Unknown]
  - Back pain [Unknown]
  - Feeling abnormal [Recovered/Resolved]
  - Hypoaesthesia [Unknown]
  - Enuresis [Recovered/Resolved]
  - Somnambulism [Recovered/Resolved]
  - Fatigue [Recovered/Resolved]
  - Somnolence [Recovered/Resolved]
  - Night sweats [Not Recovered/Not Resolved]

NARRATIVE: CASE EVENT DATE: 20090101
